FAERS Safety Report 24905623 (Version 1)
Quarter: 2025Q1

REPORT INFORMATION
  Report Type: Report from Study
  Country: US (occurrence: US)
  Receive Date: 20250130
  Receipt Date: 20250130
  Transmission Date: 20250408
  Serious: No
  Sender: HRA PHARMA
  Company Number: US-ORG100014127-2024000153

PATIENT
  Age: 38 Year
  Sex: Female

DRUGS (15)
  1. METOPIRONE [Suspect]
     Active Substance: METYRAPONE
     Indication: Adrenocortical carcinoma
     Dosage: 1 CAPSULE (250 MG TOTAL) BY MOUTH EVERY 6 HOURS AS NEEDED
     Route: 048
     Dates: start: 20240326
  2. ALBUTEROL AER HFA [Concomitant]
     Indication: Product used for unknown indication
  3. ATORVASTATIN [Concomitant]
     Active Substance: ATORVASTATIN
     Indication: Product used for unknown indication
  4. Emend SUS 125 mg [Concomitant]
     Indication: Product used for unknown indication
  5. Januvia tab 100 mg [Concomitant]
     Indication: Product used for unknown indication
  6. Lantus inj 100/ml [Concomitant]
     Indication: Product used for unknown indication
  7. Metformin tab 500 mg er [Concomitant]
     Indication: Product used for unknown indication
  8. Loperamide tab 2 mg [Concomitant]
     Indication: Product used for unknown indication
  9. LYSODREN 500 MG TAB; [Concomitant]
     Indication: Adrenocortical carcinoma
     Route: 048
     Dates: start: 20240326
  10. Metoprolol SUC tab 25 mg ER [Concomitant]
     Indication: Product used for unknown indication
     Route: 048
  11. Naproxen tab 500 mg [Concomitant]
     Indication: Product used for unknown indication
     Route: 048
  12. OLM MED/AMLO TAB /HCTZ [Concomitant]
     Indication: Product used for unknown indication
     Route: 048
  13. Ondansetron tab 8 mg [Concomitant]
     Indication: Product used for unknown indication
     Route: 048
  14. Pot Chloride tab 20meq ER [Concomitant]
     Indication: Product used for unknown indication
     Route: 048
  15. DOXAZOSIN TAB 2MG [Concomitant]
     Indication: Product used for unknown indication
     Route: 048

REACTIONS (1)
  - Off label use [Not Recovered/Not Resolved]

NARRATIVE: CASE EVENT DATE: 20240326
